FAERS Safety Report 7493683-3 (Version None)
Quarter: 2011Q2

REPORT INFORMATION
  Report Type: 
  Country: None (occurrence: None)
  Receive Date: 20110513
  Receipt Date: 20110428
  Transmission Date: 20111010
  Serious: Yes (Death, Hospitalization)
  Sender: FDA-Public Use
  Company Number: 031989

PATIENT
  Sex: Male

DRUGS (8)
  1. XYZAL [Suspect]
     Dosage: (ORAL)
     Route: 048
  2. TEMAZEPAM [Concomitant]
  3. ACETAMINOPHEN AND TRAMADOL HCL [Suspect]
     Dosage: (ORAL)
     Route: 048
  4. FENTANYL [Suspect]
     Dosage: (ORAL)
     Route: 048
  5. CERTICAN [Suspect]
     Dosage: (3 UNITS DAILY ORAL
     Route: 048
     Dates: start: 20110103, end: 20110111
  6. ESOMEPRAZOLE MAGNESIUM (NEXIUM) [Suspect]
     Dosage: (ORAL)
     Route: 048
  7. CIMETIDINE [Concomitant]
  8. DOMPERIDONE [Concomitant]

REACTIONS (5)
  - PULMONARY EMBOLISM [None]
  - VOMITING [None]
  - CONFUSIONAL STATE [None]
  - LARGE INTESTINE PERFORATION [None]
  - NAUSEA [None]
